FAERS Safety Report 12660723 (Version 2)
Quarter: 2016Q3

REPORT INFORMATION
  Report Type: Spontaneous
  Country: US (occurrence: US)
  Receive Date: 20160817
  Receipt Date: 20160901
  Transmission Date: 20161109
  Serious: No
  Sender: FDA-Public Use
  Company Number: US-RELYPSA-RLY2016001169

PATIENT
  Sex: Male

DRUGS (1)
  1. VELTASSA [Suspect]
     Active Substance: PATIROMER
     Indication: RENAL FAILURE
     Dosage: 8.4 G, Q.D.
     Route: 048
     Dates: start: 20160610

REACTIONS (1)
  - Blood potassium increased [Not Recovered/Not Resolved]
